FAERS Safety Report 7499457-1 (Version None)
Quarter: 2011Q2

REPORT INFORMATION
  Report Type: 
  Country: None (occurrence: None)
  Receive Date: 20110524
  Receipt Date: 20110519
  Transmission Date: 20111010
  Serious: Yes (Death)
  Sender: FDA-Public Use
  Company Number: PHHY2010AR70044

PATIENT
  Sex: Male

DRUGS (1)
  1. EXFORGE [Suspect]
     Indication: BLOOD PRESSURE
     Dosage: 320 MG VALSARTAN + 5 MG AMLODIPINE
     Route: 048

REACTIONS (3)
  - MALAISE [None]
  - BLOOD PRESSURE INADEQUATELY CONTROLLED [None]
  - DEATH [None]
